FAERS Safety Report 22103363 (Version 1)
Quarter: 2023Q1

REPORT INFORMATION
  Report Type: Spontaneous
  Country: CN (occurrence: CN)
  Receive Date: 20230316
  Receipt Date: 20230316
  Transmission Date: 20230417
  Serious: Yes (Other)
  Sender: FDA-Public Use
  Company Number: CN-FreseniusKabi-FK202303161

PATIENT
  Age: 53 Year
  Sex: Male

DRUGS (2)
  1. OMEGAVEN [Suspect]
     Active Substance: FISH OIL
     Indication: Colon cancer
     Dosage: 100 ML
     Route: 041
     Dates: start: 20220123, end: 20220129
  2. OMEGAVEN [Suspect]
     Active Substance: FISH OIL
     Indication: Nutritional supplementation

REACTIONS (1)
  - Hepatic function abnormal [Recovering/Resolving]

NARRATIVE: CASE EVENT DATE: 20220129
